FAERS Safety Report 5651779-2 (Version None)
Quarter: 2008Q1

REPORT INFORMATION
  Report Type: 
  Country: None (occurrence: None)
  Receive Date: 20080305
  Receipt Date: 20071212
  Transmission Date: 20080703
  Serious: Yes (Other)
  Sender: FDA-Public Use
  Company Number: GB-PFIZER INC-2008017759

PATIENT
  Age: 49 Year
  Sex: Female

DRUGS (1)
  1. PREDNISOLONE [Suspect]
     Route: 048
     Dates: start: 20071130, end: 20071204

REACTIONS (1)
  - RASH [None]
